FAERS Safety Report 18627723 (Version 1)
Quarter: 2020Q4

REPORT INFORMATION
  Report Type: Spontaneous
  Country: US (occurrence: US)
  Receive Date: 20201216
  Receipt Date: 20201216
  Transmission Date: 20210114
  Serious: No
  Sender: FDA-Public Use
  Company Number: None

PATIENT
  Age: 62 Year
  Sex: Female

DRUGS (1)
  1. METHOTREXATE. [Suspect]
     Active Substance: METHOTREXATE
     Indication: RHEUMATOID ARTHRITIS
     Dosage: ?          OTHER FREQUENCY:EVERY 7 DAYS;?
     Route: 048

REACTIONS (8)
  - Pancytopenia [None]
  - Myelosuppression [None]
  - Colitis [None]
  - Renal impairment [None]
  - Encephalopathy [None]
  - Acute kidney injury [None]
  - Toxicity to various agents [None]
  - Mucosal inflammation [None]

NARRATIVE: CASE EVENT DATE: 20201005
